FAERS Safety Report 21298511 (Version 2)
Quarter: 2022Q4

REPORT INFORMATION
  Report Type: Report from Study
  Country: MX (occurrence: MX)
  Receive Date: 20220906
  Receipt Date: 20221019
  Transmission Date: 20230113
  Serious: Yes (Other)
  Sender: FDA-Public Use
  Company Number: MX-NOVARTISPH-NVSC2022MX200496

PATIENT
  Age: 73 Year
  Sex: Female
  Weight: 71 kg

DRUGS (4)
  1. EXFORGE [Suspect]
     Active Substance: AMLODIPINE BESYLATE\VALSARTAN
     Indication: Hypertension
     Dosage: 0.5 DOSAGE FORM, QD
     Route: 048
     Dates: start: 202207
  2. EXFORGE [Suspect]
     Active Substance: AMLODIPINE BESYLATE\VALSARTAN
     Dosage: 1 DOSAGE FORM, QD
     Route: 048
  3. EXFORGE [Suspect]
     Active Substance: AMLODIPINE BESYLATE\VALSARTAN
     Dosage: 1.5 DOSAGE FORM (1 TABLET DAILY IN THE MORNING AND ? IN THE AFTER NOON (JUST IN CASE OF HIGH PRESSUR
     Route: 048
     Dates: start: 202207
  4. EXFORGE [Suspect]
     Active Substance: AMLODIPINE BESYLATE\VALSARTAN
     Dosage: 0.5 DOSAGE FORM, BID (? TABLE T DAILY IN THE MORNING AND ? IN THE AFTER NOON (JUST IN CASE OF HIGH P
     Route: 048

REACTIONS (11)
  - Pneumonia [Recovered/Resolved]
  - Productive cough [Recovered/Resolved]
  - Feeling abnormal [Unknown]
  - Nervousness [Unknown]
  - Dizziness [Unknown]
  - Insomnia [Unknown]
  - Blood pressure increased [Not Recovered/Not Resolved]
  - Headache [Unknown]
  - Hypotension [Recovered/Resolved]
  - Pain [Unknown]
  - Wrong technique in product usage process [Not Recovered/Not Resolved]

NARRATIVE: CASE EVENT DATE: 20220701
